FAERS Safety Report 21243141 (Version 1)
Quarter: 2022Q3

REPORT INFORMATION
  Report Type: Spontaneous
  Country: US (occurrence: None)
  Receive Date: 20220822
  Receipt Date: 20220822
  Transmission Date: 20221027
  Serious: No
  Sender: FDA-Public Use
  Company Number: None

PATIENT
  Age: 57 Year
  Sex: Female

DRUGS (1)
  1. SKYRIZI [Suspect]
     Active Substance: RISANKIZUMAB-RZAA
     Indication: Psoriasis
     Dosage: OTHER FREQUENCY : WK0, WK4, Q 12 WKS;?
     Route: 058
     Dates: start: 20220228, end: 20220822

REACTIONS (1)
  - Rash [None]

NARRATIVE: CASE EVENT DATE: 20220822
